FAERS Safety Report 9617599 (Version 1)
Quarter: 2013Q4

REPORT INFORMATION
  Report Type: Spontaneous
  Country: US (occurrence: US)
  Receive Date: 20131011
  Receipt Date: 20131011
  Transmission Date: 20140711
  Serious: Yes (Hospitalization)
  Sender: FDA-Public Use
  Company Number: US-DENDREON CORPORATION-2013PROUSA03201

PATIENT
  Age: 55 Year
  Sex: Male
  Weight: 80.1 kg

DRUGS (22)
  1. PROVENGE [Suspect]
     Indication: PROSTATE CANCER METASTATIC
     Dosage: 250 ML, SINGLE
     Route: 042
     Dates: start: 20121207, end: 20121207
  2. OS-CAL D [Concomitant]
     Dosage: 1 TABLETS, QD
     Route: 048
  3. ZOCOR [Concomitant]
     Dosage: 20 MG, QD
     Route: 048
  4. ZYTIGA [Concomitant]
     Dosage: 1000 MG, QD
  5. CEFAZOLIN [Concomitant]
     Dosage: 2 G, TID
     Route: 042
  6. DURAGESIC [Concomitant]
     Dosage: 1 PATCH EVERY 72 HOURS
  7. LASIX [Concomitant]
     Dosage: 40 MG, QD
     Route: 048
  8. AMARYL [Concomitant]
     Dosage: 1 TABLETS, QD
     Route: 048
  9. LORTAB [Concomitant]
     Indication: PAIN
     Dosage: 1 TABLETS, EVERY 4-6 HOURS PRN
     Route: 048
  10. NOVOLOG [Concomitant]
  11. HUMULIN N [Concomitant]
     Dosage: 40 IU EVERY MORNING
     Route: 058
  12. HUMULIN N [Concomitant]
     Dosage: 25 IU, UNK
     Route: 058
  13. LOPRESSOR [Concomitant]
     Dosage: 1 TABLETS, BID
     Route: 048
  14. THERAGRAN [Concomitant]
     Dosage: 1 TABLETS, QD
  15. NIFEDIPINE [Concomitant]
     Dosage: 1 DF, TID
     Route: 048
  16. ZOFRAN [Concomitant]
     Indication: NAUSEA
     Dosage: 1 TABLETS, BID
     Route: 048
  17. GLYCOLAX [Concomitant]
     Indication: CONSTIPATION
     Dosage: 17 G, QD AS NEEDED
  18. PROTONIX [Concomitant]
     Dosage: 1 TABLETS, TID AS NEEDED
     Route: 048
  19. K-DUR [Concomitant]
     Dosage: 1 TABLETS, QD
     Route: 048
  20. NAFCILLIN [Concomitant]
     Dosage: 10 G, EVERY 4 HOURS
     Route: 042
  21. AMBIEN [Concomitant]
     Dosage: 1 TABLETS, HS
     Route: 048
  22. PREDNISONE [Concomitant]
     Indication: PROSTATE CANCER

REACTIONS (2)
  - Metastases to meninges [Unknown]
  - Cerebrovascular accident [Unknown]
